FAERS Safety Report 10088933 (Version 1)
Quarter: 2014Q2

REPORT INFORMATION
  Report Type: Report from Study
  Country: DE (occurrence: DE)
  Receive Date: 20140421
  Receipt Date: 20140421
  Transmission Date: 20141212
  Serious: No
  Sender: FDA-Public Use
  Company Number: PHHY2014DE048200

PATIENT
  Sex: Male

DRUGS (9)
  1. AMN107 [Suspect]
     Indication: CHRONIC MYELOID LEUKAEMIA
     Dosage: 600 MG, PER DAY
     Route: 048
     Dates: start: 20130308
  2. AMN107 [Suspect]
     Dosage: 600 MG, PER DAY
     Route: 048
     Dates: start: 20130409
  3. AMN107 [Suspect]
     Dosage: 600 MG, PER DAY
     Route: 048
     Dates: start: 20130503
  4. AMN107 [Suspect]
     Dosage: 600 MG, PER DAY
     Route: 048
     Dates: start: 20130726
  5. AMN107 [Suspect]
     Dosage: 600 MG, PER DAY
     Route: 048
     Dates: start: 20130920
  6. AMN107 [Suspect]
     Dosage: 400 MG, PER DAY
     Route: 048
     Dates: start: 20140110
  7. AMN107 [Suspect]
     Dosage: 400 MG, PER DAY
     Route: 048
     Dates: start: 20140404
  8. VESIKUR [Concomitant]
     Dosage: UNK UKN, UNK
     Dates: start: 2011, end: 20130430
  9. BISOPROLOL [Concomitant]
     Dosage: 2.5 MG, UNK
     Dates: start: 2011

REACTIONS (4)
  - Fatigue [Not Recovered/Not Resolved]
  - Stress [Not Recovered/Not Resolved]
  - Dizziness [Not Recovered/Not Resolved]
  - Hypoaesthesia [Not Recovered/Not Resolved]
